FAERS Safety Report 12163508 (Version 1)
Quarter: 2016Q1

REPORT INFORMATION
  Report Type: Spontaneous
  Country: US (occurrence: US)
  Receive Date: 20160309
  Receipt Date: 20160309
  Transmission Date: 20160526
  Serious: Yes (Other)
  Sender: FDA-Public Use
  Company Number: US-FERRINGPH-2016FE01037

PATIENT

DRUGS (2)
  1. CERVIDIL [Suspect]
     Active Substance: DINOPROSTONE
     Indication: INDUCED LABOUR
     Dosage: UNK, ONCE/SINGLE
     Route: 064
     Dates: start: 201006, end: 201006
  2. PITOCIN [Suspect]
     Active Substance: OXYTOCIN
     Route: 064

REACTIONS (1)
  - Learning disorder [Unknown]
